FAERS Safety Report 21614012 (Version 10)
Quarter: 2024Q4

REPORT INFORMATION
  Report Type: Report from Study
  Country: US (occurrence: US)
  Receive Date: 20221118
  Receipt Date: 20241003
  Transmission Date: 20250115
  Serious: Yes (Other)
  Sender: ASTELLAS
  Company Number: US-ASTELLAS-2022US021633

PATIENT
  Sex: Male

DRUGS (8)
  1. XTANDI [Suspect]
     Active Substance: ENZALUTAMIDE
     Indication: Prostate cancer
     Dosage: WITH OR WITHOUT FOOD
     Route: 048
     Dates: start: 20220601
  2. XTANDI [Suspect]
     Active Substance: ENZALUTAMIDE
     Dosage: WITH OR WITHOUT FOOD
     Route: 048
  3. ASPIRIN [Concomitant]
     Active Substance: ASPIRIN
     Indication: Product used for unknown indication
     Route: 065
  4. ATORVASTATIN [Concomitant]
     Active Substance: ATORVASTATIN
     Indication: Product used for unknown indication
     Route: 065
  5. OXYCODONE [Concomitant]
     Active Substance: OXYCODONE
     Indication: Product used for unknown indication
     Route: 065
  6. TELMISARTAN [Concomitant]
     Active Substance: TELMISARTAN
     Indication: Product used for unknown indication
     Route: 065
  7. LUPRON DEPOT [Concomitant]
     Active Substance: LEUPROLIDE ACETATE
     Indication: Product used for unknown indication
     Route: 065
  8. METFORMIN [Concomitant]
     Active Substance: METFORMIN HYDROCHLORIDE
     Indication: Product used for unknown indication
     Route: 065

REACTIONS (15)
  - Neuropathy peripheral [Not Recovered/Not Resolved]
  - Swelling [Not Recovered/Not Resolved]
  - Peripheral swelling [Not Recovered/Not Resolved]
  - Mobility decreased [Not Recovered/Not Resolved]
  - Myalgia [Unknown]
  - Muscle spasms [Unknown]
  - Anxiety [Not Recovered/Not Resolved]
  - Joint swelling [Not Recovered/Not Resolved]
  - Hot flush [Not Recovered/Not Resolved]
  - Flushing [Not Recovered/Not Resolved]
  - Fatigue [Not Recovered/Not Resolved]
  - Hypertension [Not Recovered/Not Resolved]
  - Impaired quality of life [Not Recovered/Not Resolved]
  - Memory impairment [Not Recovered/Not Resolved]
  - Product dose omission in error [Not Recovered/Not Resolved]
